FAERS Safety Report 9867401 (Version 1)
Quarter: 2014Q1

REPORT INFORMATION
  Report Type: Spontaneous
  Country: BR (occurrence: BR)
  Receive Date: 20140204
  Receipt Date: 20140204
  Transmission Date: 20141002
  Serious: Yes (Other)
  Sender: FDA-Public Use
  Company Number: BR-ASTRAZENECA-2014SE06179

PATIENT
  Age: 77 Year
  Sex: Female
  Weight: 70 kg

DRUGS (2)
  1. NEXIUM [Suspect]
     Indication: OESOPHAGITIS
     Route: 048
     Dates: start: 2011, end: 2012
  2. DAFLON [Concomitant]
     Indication: POOR PERIPHERAL CIRCULATION
     Dosage: DAILY
     Route: 048

REACTIONS (1)
  - Thrombosis [Recovered/Resolved]
